FAERS Safety Report 8161241-3 (Version None)
Quarter: 2012Q1

REPORT INFORMATION
  Report Type: 
  Country: None (occurrence: None)
  Receive Date: 20120103
  Receipt Date: 20110914
  Transmission Date: 20120608
  Serious: No
  Sender: FDA-Public Use
  Company Number: AE-2011-001543

PATIENT
  Age: 51 Year
  Sex: Female
  Weight: 83.9154 kg

DRUGS (6)
  1. GLIMEPIRIDE [Concomitant]
  2. RIBAVIRIN [Concomitant]
  3. PEGASYS [Concomitant]
  4. JANUMET [Concomitant]
  5. LISINOPRIL [Concomitant]
  6. INCIVEK [Suspect]
     Dosage: 6 DOSAGE FORMS (2 DOSAGE FORMS, 1 IN 8 HR)
     Dates: start: 20110818

REACTIONS (1)
  - THERAPY CESSATION [None]
